FAERS Safety Report 12872367 (Version 1)
Quarter: 2016Q4

REPORT INFORMATION
  Report Type: Report from Study
  Country: US (occurrence: US)
  Receive Date: 20161021
  Receipt Date: 20161021
  Transmission Date: 20170207
  Serious: Yes (Hospitalization)
  Sender: FDA-Public Use
  Company Number: US-ROCHE-1843894

PATIENT
  Age: 43 Year
  Sex: Male
  Weight: 94.1 kg

DRUGS (4)
  1. CLADRIBINE. [Suspect]
     Active Substance: CLADRIBINE
     Indication: HAIRY CELL LEUKAEMIA
     Dosage: X 5DAYS
     Route: 042
     Dates: start: 20160929, end: 20161003
  2. KEFLEX [Concomitant]
     Active Substance: CEPHALEXIN
  3. RITUXIMAB [Suspect]
     Active Substance: RITUXIMAB
     Indication: HAIRY CELL LEUKAEMIA
     Dosage: X 8 DOSES
     Route: 042
     Dates: start: 20160929
  4. ENOXAPARIN [Suspect]
     Active Substance: ENOXAPARIN
     Indication: THROMBOSIS
     Route: 065
     Dates: start: 20161010

REACTIONS (1)
  - Chest pain [Unknown]

NARRATIVE: CASE EVENT DATE: 20161012
